FAERS Safety Report 9314961 (Version 1)
Quarter: 2013Q2

REPORT INFORMATION
  Report Type: Spontaneous
  Country: US (occurrence: US)
  Receive Date: 20130529
  Receipt Date: 20130529
  Transmission Date: 20140414
  Serious: Yes (Death, Hospitalization)
  Sender: FDA-Public Use
  Company Number: US-GLAXOSMITHKLINE-A0787821A

PATIENT
  Age: 61 Year
  Sex: Female

DRUGS (1)
  1. AVANDIA [Suspect]
     Indication: DIABETES MELLITUS
     Dosage: 8MG PER DAY
     Route: 048
     Dates: start: 199906, end: 200706

REACTIONS (5)
  - Sepsis [Fatal]
  - Multi-organ failure [Fatal]
  - Myocardial infarction [Unknown]
  - Chest pain [Unknown]
  - Chest discomfort [Unknown]
